FAERS Safety Report 5133037-8 (Version None)
Quarter: 2006Q4

REPORT INFORMATION
  Report Type: 
  Country: None (occurrence: None)
  Receive Date: 20061017
  Receipt Date: 20061002
  Transmission Date: 20070319
  Serious: Yes (Hospitalization)
  Sender: FDA-Public Use
  Company Number: JP200610001072

PATIENT
  Age: 45 Year
  Sex: 0

DRUGS (1)
  1. GEMZAR [Suspect]
     Indication: PANCREATIC CARCINOMA
     Dosage: 400 MG/M2, OTHER, INTRAVENOUS
     Route: 042
     Dates: start: 20060801, end: 20060901

REACTIONS (2)
  - ANTI-PLATELET ANTIBODY POSITIVE [None]
  - PLATELET COUNT DECREASED [None]
